FAERS Safety Report 10866034 (Version 4)
Quarter: 2018Q4

REPORT INFORMATION
  Report Type: Report from Study
  Country: BR (occurrence: BR)
  Receive Date: 20150225
  Receipt Date: 20181206
  Transmission Date: 20190204
  Serious: Yes (Hospitalization)
  Sender: FDA-Public Use
  Company Number: PHHY2015BR021395

PATIENT
  Age: 57 Year
  Sex: Female
  Weight: 55 kg

DRUGS (4)
  1. DOREN [Concomitant]
     Indication: FIBROMYALGIA
     Dosage: 2 DF, QD
     Route: 048
  2. ACLASTA [Suspect]
     Active Substance: ZOLEDRONIC ACID
     Dosage: 1 DF (5 MG/100 ML), Q12MO
     Route: 042
     Dates: start: 201808
  3. VELIJA [Concomitant]
     Active Substance: DULOXETINE HYDROCHLORIDE
     Indication: DEPRESSION
     Dosage: 2 DF, QD
     Route: 048
  4. ACLASTA [Suspect]
     Active Substance: ZOLEDRONIC ACID
     Indication: OSTEOPOROSIS
     Dosage: 1 DF (5 MG/100 ML), Q12MO
     Route: 042
     Dates: start: 2014

REACTIONS (10)
  - Reflux gastritis [Not Recovered/Not Resolved]
  - Panic disorder [Not Recovered/Not Resolved]
  - Condition aggravated [Unknown]
  - Malaise [Unknown]
  - Muscle rigidity [Unknown]
  - Schizophrenia [Not Recovered/Not Resolved]
  - Depression [Recovered/Resolved]
  - Osteoporosis [Unknown]
  - Blood pressure decreased [Unknown]
  - Feeling abnormal [Unknown]

NARRATIVE: CASE EVENT DATE: 2018
